FAERS Safety Report 8585463-2 (Version None)
Quarter: 2012Q3

REPORT INFORMATION
  Report Type: 
  Country: None (occurrence: None)
  Receive Date: 20120810
  Receipt Date: 20110810
  Transmission Date: 20120928
  Serious: No
  Sender: FDA-Public Use
  Company Number: US-GLAXOSMITHKLINE-A0940370A

PATIENT
  Age: 87 Year
  Sex: Male

DRUGS (4)
  1. REQUIP XL [Suspect]
     Indication: RESTLESS LEGS SYNDROME
     Dosage: 4MG PER DAY
     Route: 048
  2. LISINOPRIL [Concomitant]
  3. CITALOPRAM HYDROBROMIDE [Concomitant]
  4. GALANTAMINE HYDROBROMIDE [Concomitant]

REACTIONS (1)
  - MUSCLE SPASMS [None]
